FAERS Safety Report 6408338-3 (Version None)
Quarter: 2009Q4

REPORT INFORMATION
  Report Type: 
  Country: None (occurrence: None)
  Receive Date: 20091021
  Receipt Date: 20091012
  Transmission Date: 20100525
  Serious: Yes (Other)
  Sender: FDA-Public Use
  Company Number: PHEH2009US13558

PATIENT

DRUGS (1)
  1. STALEVO 100 [Suspect]

REACTIONS (1)
  - PANCREATITIS [None]
